FAERS Safety Report 4564372-X (Version None)
Quarter: 2005Q1

REPORT INFORMATION
  Report Type: 
  Country: None (occurrence: None)
  Receive Date: 20050128
  Receipt Date: 20050112
  Transmission Date: 20050727
  Serious: Yes (Other)
  Sender: FDA-Public Use
  Company Number: BE-GLAXOSMITHKLINE-B0364924A

PATIENT

DRUGS (2)
  1. REQUIP [Suspect]
     Indication: PARKINSONISM
     Dosage: 5MG THREE TIMES PER DAY
     Route: 048
  2. L-DOPA [Suspect]
     Indication: ILL-DEFINED DISORDER
     Dosage: 125MG THREE TIMES PER DAY
     Route: 065

REACTIONS (1)
  - SLEEP ATTACKS [None]
